FAERS Safety Report 5580490-1 (Version None)
Quarter: 2007Q4

REPORT INFORMATION
  Report Type: 
  Country: None (occurrence: None)
  Receive Date: 20071231
  Receipt Date: 20071231
  Transmission Date: 20080405
  Serious: Yes (Hospitalization)
  Sender: FDA-Public Use
  Company Number: None

PATIENT
  Sex: Female
  Weight: 53.5 kg

DRUGS (8)
  1. METHOTREXATE [Suspect]
     Dosage: 75 MG
  2. PEG-L-ASPARAGINASE (K-H) [Suspect]
     Dosage: 7550 IU
  3. PREDNISONE TAB [Suspect]
     Dosage: 2520 MG
  4. VINCRISTINE SULFATE [Suspect]
     Dosage: 10 MG
  5. CYCLOPHOSPHAMIDE [Suspect]
     Dosage: 1510 MG
  6. CYTARABINE [Suspect]
     Dosage: 974 MG
  7. DAUNORUBICIN HCL [Suspect]
     Dosage: 156 MG
  8. MERCAPTOPURINE [Suspect]
     Dosage: 1300 MG

REACTIONS (6)
  - CONVULSION [None]
  - DYSKINESIA [None]
  - HEADACHE [None]
  - LOSS OF CONSCIOUSNESS [None]
  - MOUTH HAEMORRHAGE [None]
  - STATUS EPILEPTICUS [None]
